FAERS Safety Report 14569148 (Version 1)
Quarter: 2018Q1

REPORT INFORMATION
  Report Type: Spontaneous
  Country: US (occurrence: US)
  Receive Date: 20180223
  Receipt Date: 20180223
  Transmission Date: 20180509
  Serious: Yes (Disabling)
  Sender: FDA-Public Use
  Company Number: None

PATIENT
  Age: 27 Year
  Sex: Male
  Weight: 83.25 kg

DRUGS (7)
  1. ZYRTEC [Concomitant]
     Active Substance: CETIRIZINE HYDROCHLORIDE
  2. PROBIOTICS [Concomitant]
     Active Substance: PROBIOTICS NOS
  3. VITAMIN E [Concomitant]
     Active Substance: .ALPHA.-TOCOPHEROL
  4. DESVENLAFAXINE. [Suspect]
     Active Substance: DESVENLAFAXINE
     Indication: DIARRHOEA
     Dosage: ?          QUANTITY:90 TABLET(S);?
     Route: 048
  5. DESVENLAFAXINE. [Suspect]
     Active Substance: DESVENLAFAXINE
     Indication: DEPRESSION
     Dosage: ?          QUANTITY:90 TABLET(S);?
     Route: 048
  6. PEPPERMINT OIL [Concomitant]
     Active Substance: PEPPERMINT OIL
  7. LYSINE [Concomitant]
     Active Substance: LYSINE

REACTIONS (16)
  - Photophobia [None]
  - Insomnia [None]
  - Paraesthesia [None]
  - Muscular weakness [None]
  - Pruritus [None]
  - Clostridium difficile infection [None]
  - Anxiety [None]
  - Hallucination [None]
  - Dizziness [None]
  - Nightmare [None]
  - Diarrhoea [None]
  - Depression [None]
  - Confusional state [None]
  - Headache [None]
  - Drug ineffective [None]
  - Withdrawal syndrome [None]

NARRATIVE: CASE EVENT DATE: 20180115
